FAERS Safety Report 9353452 (Version 1)
Quarter: 2013Q2

REPORT INFORMATION
  Report Type: Spontaneous
  Country: US (occurrence: None)
  Receive Date: 20130617
  Receipt Date: 20130617
  Transmission Date: 20140414
  Serious: Yes (Hospitalization)
  Sender: FDA-Public Use
  Company Number: None

PATIENT
  Age: 70 Year
  Sex: Female
  Weight: 74.1 kg

DRUGS (6)
  1. CYCLOPHOSPHAMIDE [Suspect]
  2. DOXORUBICIN HYDROCHLORIDE [Suspect]
  3. ETOPOSIDE [Suspect]
  4. PREDNISONE [Suspect]
  5. RITUXIMAB (MOAB C2B8 ANTI CD20, CHIMERIC) [Suspect]
  6. VINCRISTIN SULFATE [Suspect]

REACTIONS (6)
  - Abdominal pain [None]
  - Pyrexia [None]
  - Rectal haemorrhage [None]
  - Pulmonary embolism [None]
  - Deep vein thrombosis [None]
  - Blood culture positive [None]
